FAERS Safety Report 5452676-8 (Version None)
Quarter: 2007Q3

REPORT INFORMATION
  Report Type: 
  Country: None (occurrence: None)
  Receive Date: 20070914
  Receipt Date: 20070904
  Transmission Date: 20080115
  Serious: Yes (Hospitalization)
  Sender: FDA-Public Use
  Company Number: US-JNJFOC-20070900922

PATIENT
  Age: 46 Year
  Sex: Female

DRUGS (5)
  1. ACETAMINOPHEN [Suspect]
  2. ACETAMINOPHEN [Suspect]
     Indication: PAIN
     Dosage: AS NEEDED
  3. ACETAMINOPHEN W/ PROPOXYPHENE HCL [Suspect]
     Indication: PAIN
     Dosage: AS NEEDED
  4. ENALAPRIL MALEATE [Concomitant]
  5. PREMARIN [Concomitant]

REACTIONS (5)
  - BLOOD AMINO ACID LEVEL INCREASED [None]
  - LIVER FUNCTION TEST ABNORMAL [None]
  - METABOLIC ACIDOSIS [None]
  - RENAL FUNCTION TEST ABNORMAL [None]
  - RESPIRATORY FAILURE [None]
